FAERS Safety Report 8923093 (Version 2)
Quarter: 2012Q4

REPORT INFORMATION
  Report Type: 
  Country: BR (occurrence: BR)
  Receive Date: 20121123
  Receipt Date: 20121219
  Transmission Date: 20130627
  Serious: Yes (Other)
  Sender: FDA-Public Use
  Company Number: PHHY2012BR105175

PATIENT
  Sex: Male

DRUGS (1)
  1. DIOVAN HCT [Suspect]
     Indication: HYPERTENSION
     Dosage: 1 DF, (160 mg vals/ 12,5 mg hydro) QD
     Route: 048

REACTIONS (2)
  - Road traffic accident [Recovering/Resolving]
  - Skeletal injury [Recovered/Resolved]
